FAERS Safety Report 8915128 (Version 3)
Quarter: 2013Q1

REPORT INFORMATION
  Report Type: Spontaneous
  Country: US (occurrence: US)
  Receive Date: 20121116
  Receipt Date: 20130201
  Transmission Date: 20140127
  Serious: No
  Sender: FDA-Public Use
  Company Number: US-009507513-1211USA005790

PATIENT
  Age: 27 Year
  Sex: Female

DRUGS (2)
  1. DULERA [Suspect]
     Indication: RESPIRATORY TRACT INFLAMMATION
     Dosage: 200/5MCG
     Route: 065
     Dates: start: 20121107, end: 20121108
  2. AMOXICILLIN [Concomitant]
     Dosage: 875 MG, BID

REACTIONS (4)
  - Hallucination [Unknown]
  - Joint dislocation [Unknown]
  - Neck injury [Unknown]
  - Expired drug administered [Unknown]
